FAERS Safety Report 8530688-5 (Version None)
Quarter: 2012Q3

REPORT INFORMATION
  Report Type: 
  Country: None (occurrence: None)
  Receive Date: 20120723
  Receipt Date: 20120709
  Transmission Date: 20120928
  Serious: Yes (Other)
  Sender: FDA-Public Use
  Company Number: JP-ROCHE-1080788

PATIENT
  Sex: Male
  Weight: 56 kg

DRUGS (5)
  1. AVASTIN [Suspect]
     Indication: LARGE INTESTINE CARCINOMA
     Dosage: DOSAGE IS UNCERTAIN.
     Route: 041
     Dates: start: 20120409, end: 20120604
  2. FLUOROURACIL [Suspect]
     Route: 041
     Dates: end: 20120606
  3. FLUOROURACIL [Suspect]
     Indication: RECTAL CANCER RECURRENT
     Route: 040
     Dates: start: 20120409, end: 20120604
  4. OXALIPLATIN [Suspect]
     Indication: RECTAL CANCER RECURRENT
     Route: 041
     Dates: start: 20120409, end: 20120604
  5. ISOVORIN [Suspect]
     Indication: RECTAL CANCER RECURRENT
     Route: 041
     Dates: start: 20120409, end: 20120606

REACTIONS (2)
  - NEUTROPHIL COUNT DECREASED [None]
  - INTERSTITIAL LUNG DISEASE [None]
